FAERS Safety Report 9403273 (Version 2)
Quarter: 2013Q3

REPORT INFORMATION
  Report Type: Spontaneous
  Country: US (occurrence: US)
  Receive Date: 20130716
  Receipt Date: 20130820
  Transmission Date: 20140515
  Serious: No
  Sender: FDA-Public Use
  Company Number: US-009507513-1307USA007317

PATIENT
  Age: 83 Year
  Sex: Female
  Weight: 53.52 kg

DRUGS (5)
  1. CLARITIN [Suspect]
     Indication: RESPIRATORY TRACT CONGESTION
     Dosage: 10 MG, QD
     Route: 048
     Dates: start: 20130712, end: 20130715
  2. CLARITIN [Suspect]
     Indication: RHINORRHOEA
  3. CLARITIN [Suspect]
     Indication: HYPERSENSITIVITY
  4. CLARITIN [Suspect]
     Indication: MEDICAL OBSERVATION
  5. CYANOCOBALAMIN [Concomitant]
     Indication: PERNICIOUS ANAEMIA
     Dosage: UNK, UNKNOWN

REACTIONS (3)
  - Dry mouth [Recovered/Resolved]
  - Throat irritation [Unknown]
  - Drug ineffective [Unknown]
